FAERS Safety Report 4994863-9 (Version None)
Quarter: 2006Q2

REPORT INFORMATION
  Report Type: 
  Country: None (occurrence: None)
  Receive Date: 20060503
  Receipt Date: 20060418
  Transmission Date: 20061013
  Serious: Yes (Other)
  Sender: FDA-Public Use
  Company Number: US200604002951

PATIENT
  Age: 64 Year
  Sex: Female

DRUGS (2)
  1. PROZAC [Suspect]
     Indication: EMOTIONAL DISORDER
     Dosage: 20 MG, DAILY (1/D); 10 MG; 20 MG, OTHER
     Dates: start: 19910101
  2. PROZAC WEEKLY [Suspect]
     Indication: EMOTIONAL DISORDER
     Dosage: 90 MG, WEEKLY (1/W)

REACTIONS (5)
  - BREAST CANCER [None]
  - FALL [None]
  - SLEEP DISORDER [None]
  - TOOTH INJURY [None]
  - WEIGHT INCREASED [None]
